FAERS Safety Report 5941533-6 (Version None)
Quarter: 2008Q4

REPORT INFORMATION
  Report Type: 
  Country: None (occurrence: None)
  Receive Date: 20081103
  Receipt Date: 20081103
  Transmission Date: 20090506
  Serious: Yes (Disabling)
  Sender: FDA-Public Use
  Company Number: None

PATIENT
  Age: 92 Year
  Sex: Female
  Weight: 62 kg

DRUGS (17)
  1. COUMADIN [Suspect]
     Indication: THROMBOSIS PROPHYLAXIS
     Dosage: 3MG ONCE DAILY PO
     Route: 048
     Dates: start: 20081010, end: 20081014
  2. SIMVASTAIN [Concomitant]
  3. ASPIRIN [Concomitant]
  4. DILTIAZEM HCL [Concomitant]
  5. LASIX [Concomitant]
  6. ACETAMINOPHEN [Concomitant]
  7. ATENOLOL [Concomitant]
  8. ENOXAPARIN SODIUM [Concomitant]
  9. GABAPENTIN [Concomitant]
  10. LORAZEPAM [Concomitant]
  11. SOLU-MEDROL [Concomitant]
  12. OMEPRAZOLE [Concomitant]
  13. OXYBUTININ [Concomitant]
  14. PAROXETINE HCL [Concomitant]
  15. POTASSIUM CHLORIDE [Concomitant]
  16. ZOSYN [Concomitant]
  17. TOBRAMYACIN [Concomitant]

REACTIONS (1)
  - INTERNATIONAL NORMALISED RATIO INCREASED [None]
